FAERS Safety Report 4540557-3 (Version None)
Quarter: 2004Q4

REPORT INFORMATION
  Report Type: 
  Country: None (occurrence: None)
  Receive Date: 20041229
  Receipt Date: 20041222
  Transmission Date: 20050328
  Serious: Yes (Hospitalization)
  Sender: FDA-Public Use
  Company Number: PHBS2004JP17219

PATIENT
  Age: 50 Year
  Sex: Male

DRUGS (2)
  1. VOLTAREN [Suspect]
     Indication: LOCALISED OSTEOARTHRITIS
     Route: 048
  2. VOLTAREN [Suspect]
     Route: 054

REACTIONS (2)
  - ILEUS [None]
  - SMALL INTESTINE ULCER [None]
